FAERS Safety Report 26115758 (Version 1)
Quarter: 2025Q4

REPORT INFORMATION
  Report Type: Report from Study
  Country: US (occurrence: US)
  Receive Date: 20251203
  Receipt Date: 20251203
  Transmission Date: 20260119
  Serious: Yes (Other)
  Sender: TAKEDA
  Company Number: US-TAKEDA-2025TUS106920

PATIENT
  Age: 57 Year
  Sex: Male

DRUGS (1)
  1. VEDOLIZUMAB [Suspect]
     Active Substance: VEDOLIZUMAB
     Indication: Product used for unknown indication
     Dosage: UNK

REACTIONS (14)
  - Colitis ulcerative [Unknown]
  - Type 2 diabetes mellitus [Unknown]
  - Hyperphagia [Unknown]
  - Feeling of despair [Unknown]
  - Impaired work ability [Unknown]
  - Depressed mood [Unknown]
  - Insomnia [Unknown]
  - Gastrooesophageal reflux disease [Unknown]
  - Renal cyst [Unknown]
  - Hepatic steatosis [Unknown]
  - Decreased appetite [Unknown]
  - Asthenia [Unknown]
  - Blood pressure increased [Unknown]
  - Fatigue [Unknown]
